FAERS Safety Report 9119264 (Version 2)
Quarter: 2013Q2

REPORT INFORMATION
  Report Type: Spontaneous
  Country: US (occurrence: US)
  Receive Date: 20130226
  Receipt Date: 20130521
  Transmission Date: 20140414
  Serious: Yes (Other)
  Sender: FDA-Public Use
  Company Number: US-PFIZER INC-2013066330

PATIENT
  Age: 60 Year
  Sex: Female
  Weight: 53.06 kg

DRUGS (1)
  1. ESTRING [Suspect]
     Indication: VULVOVAGINAL DRYNESS
     Dosage: UNK, EVERY 3 MONTHS ^Q 3 RG^
     Route: 067
     Dates: start: 2004, end: 201301

REACTIONS (3)
  - Urinary tract infection bacterial [Recovered/Resolved]
  - Chills [Recovered/Resolved]
  - Peripheral vascular disorder [Recovered/Resolved]
